FAERS Safety Report 18274415 (Version 1)
Quarter: 2020Q3

REPORT INFORMATION
  Report Type: Report from Study
  Country: US (occurrence: US)
  Receive Date: 20200916
  Receipt Date: 20200916
  Transmission Date: 20201103
  Serious: Yes (Other)
  Sender: FDA-Public Use
  Company Number: US-BAYER-2020-184727

PATIENT
  Age: 63 Year
  Sex: Female
  Weight: 39.32 kg

DRUGS (8)
  1. STIVARGA [Suspect]
     Active Substance: REGORAFENIB
     Indication: COLON CANCER
     Dosage: 160 MG, QD DAYS 21 OF 28 DAYS CYCLE
     Route: 048
  2. MORPHINE [Concomitant]
     Active Substance: MORPHINE
     Dosage: UNK
  3. PREDNISONE. [Concomitant]
     Active Substance: PREDNISONE
  4. GABAPENTINE [Concomitant]
     Active Substance: GABAPENTIN
     Dosage: UNK
  5. CAPECITABINE. [Concomitant]
     Active Substance: CAPECITABINE
     Dosage: UNK
  6. STIVARGA [Suspect]
     Active Substance: REGORAFENIB
     Indication: COLON CANCER
     Dosage: 80 MG DAILY FOR 21 DAYS OF 28 DAYS
     Route: 048
     Dates: start: 20200825
  7. SSD [Concomitant]
     Active Substance: SILVER SULFADIAZINE
     Dosage: UNK
  8. PAROXETINE. [Concomitant]
     Active Substance: PAROXETINE

REACTIONS (17)
  - Eye pain [Unknown]
  - Tongue blistering [Not Recovered/Not Resolved]
  - Tongue ulceration [Not Recovered/Not Resolved]
  - Off label use [None]
  - Oropharyngeal pain [Unknown]
  - Cough [Unknown]
  - Odynophagia [Unknown]
  - Dysphonia [Unknown]
  - Decreased appetite [Unknown]
  - Chills [Unknown]
  - Influenza like illness [None]
  - Condition aggravated [Unknown]
  - Paraesthesia oral [Not Recovered/Not Resolved]
  - Fatigue [Unknown]
  - Pain [Unknown]
  - Drug ineffective [Unknown]
  - Diarrhoea [Unknown]
